FAERS Safety Report 7098545-1 (Version None)
Quarter: 2010Q4

REPORT INFORMATION
  Report Type: 
  Country: None (occurrence: None)
  Receive Date: 20101112
  Receipt Date: 20101030
  Transmission Date: 20110411
  Serious: Yes (Other)
  Sender: FDA-Public Use
  Company Number: PHHY2010DE73891

PATIENT
  Sex: Male

DRUGS (1)
  1. RITALIN LA [Suspect]
     Dosage: 20 MG, QD
     Dates: start: 20050101

REACTIONS (3)
  - AGGRESSION [None]
  - HALLUCINATION [None]
  - PSYCHOTIC DISORDER [None]
